FAERS Safety Report 17926565 (Version 1)
Quarter: 2020Q2

REPORT INFORMATION
  Report Type: Spontaneous
  Country: ES (occurrence: ES)
  Receive Date: 20200623
  Receipt Date: 20200623
  Transmission Date: 20200714
  Serious: Yes (Life-Threatening, Hospitalization, Other)
  Sender: FDA-Public Use
  Company Number: ES-SUN PHARMACEUTICAL INDUSTRIES LTD-2020RR-250747

PATIENT
  Age: 20 Year
  Sex: Female

DRUGS (7)
  1. GEMCITABINE. [Suspect]
     Active Substance: GEMCITABINE
     Indication: OSTEOSARCOMA
     Dosage: 1212 MG ()
     Route: 042
     Dates: start: 2020, end: 2020
  2. METOTREXATO (418A) [Suspect]
     Active Substance: METHOTREXATE
     Indication: OSTEOSARCOMA
     Dosage: 6500 MG ()
     Route: 042
     Dates: start: 2017, end: 2017
  3. CISPLATINO [Suspect]
     Active Substance: CISPLATIN
     Indication: OSTEOSARCOMA
     Dosage: 175 MG ()
     Route: 042
     Dates: start: 2017, end: 2017
  4. ETOPOSIDO (518A) [Suspect]
     Active Substance: ETOPOSIDE
     Indication: OSTEOSARCOMA
     Dosage: 180 MG ()
     Route: 042
     Dates: start: 2019, end: 2019
  5. DOXORUBICINA (202A) [Suspect]
     Active Substance: DOXORUBICIN HYDROCHLORIDE
     Indication: OSTEOSARCOMA
     Dosage: 43.3 MG ()
     Route: 042
     Dates: start: 2017, end: 2017
  6. MEPACT 4 MG POLVO PARA SUSPENSION PARA PERFUSION, 1 VIAL [Suspect]
     Active Substance: MIFAMURTIDE
     Indication: OSTEOSARCOMA
     Dosage: 3.4 MG ()
     Route: 042
     Dates: start: 2018, end: 2018
  7. IFOSFAMIDA (337A) [Suspect]
     Active Substance: IFOSFAMIDE
     Indication: OSTEOSARCOMA
     Dosage: 3240 MG ()
     Route: 042
     Dates: start: 2019, end: 2019

REACTIONS (1)
  - Acute myeloid leukaemia [Not Recovered/Not Resolved]

NARRATIVE: CASE EVENT DATE: 20200514
